FAERS Safety Report 5390583-X (Version None)
Quarter: 2007Q3

REPORT INFORMATION
  Report Type: 
  Country: None (occurrence: None)
  Receive Date: 20070718
  Receipt Date: 20070709
  Transmission Date: 20080115
  Serious: Yes (Death, Other)
  Sender: FDA-Public Use
  Company Number: JP-PFIZER INC-2007056737

PATIENT
  Age: 82 Year
  Sex: Female

DRUGS (1)
  1. SULPERAZON [Suspect]
     Indication: INFECTION PROPHYLAXIS
     Dosage: DAILY DOSE:2GRAM
     Route: 042
     Dates: start: 20070615, end: 20070616

REACTIONS (2)
  - DEATH [None]
  - PSEUDOMEMBRANOUS COLITIS [None]
